FAERS Safety Report 25688933 (Version 4)
Quarter: 2025Q4

REPORT INFORMATION
  Report Type: Report from Study
  Country: US (occurrence: US)
  Receive Date: 20250818
  Receipt Date: 20251007
  Transmission Date: 20260118
  Serious: Yes (Other)
  Sender: ABBVIE
  Company Number: US-ABBVIE-6415236

PATIENT
  Age: 66 Year
  Sex: Male

DRUGS (1)
  1. RINVOQ [Suspect]
     Active Substance: UPADACITINIB
     Indication: Crohn^s disease
     Route: 048
     Dates: start: 20231101

REACTIONS (8)
  - Malignant melanoma [Recovering/Resolving]
  - Weight increased [Recovering/Resolving]
  - Impaired healing [Recovering/Resolving]
  - Increased tendency to bruise [Unknown]
  - Multiple allergies [Unknown]
  - Basal cell carcinoma [Recovering/Resolving]
  - Sneezing [Recovering/Resolving]
  - Acne [Recovering/Resolving]

NARRATIVE: CASE EVENT DATE: 20231101
